FAERS Safety Report 5824628-7 (Version None)
Quarter: 2008Q3

REPORT INFORMATION
  Report Type: 
  Country: None (occurrence: None)
  Receive Date: 20080728
  Receipt Date: 20080714
  Transmission Date: 20090109
  Serious: Yes (Hospitalization, Other)
  Sender: FDA-Public Use
  Company Number: US-ELI_LILLY_AND_COMPANY-US200807002745

PATIENT
  Sex: Female

DRUGS (4)
  1. FORTEO [Suspect]
     Indication: OSTEOPOROSIS
  2. URSO 250 [Concomitant]
  3. CALCIUM                                 /N/A/ [Concomitant]
  4. VITAMIN TAB [Concomitant]

REACTIONS (2)
  - FALL [None]
  - HIP FRACTURE [None]
